FAERS Safety Report 17544321 (Version 1)
Quarter: 2020Q1

REPORT INFORMATION
  Report Type: Spontaneous
  Country: US (occurrence: US)
  Receive Date: 20200316
  Receipt Date: 20200316
  Transmission Date: 20200409
  Serious: No
  Sender: FDA-Public Use
  Company Number: US-BAYER-2020-045195

PATIENT
  Sex: Male

DRUGS (2)
  1. DIMETASONE [Concomitant]
  2. CLARITIN [Suspect]
     Active Substance: LORATADINE
     Route: 048

REACTIONS (1)
  - Insomnia [Unknown]
